FAERS Safety Report 16567226 (Version 1)
Quarter: 2019Q3

REPORT INFORMATION
  Report Type: Spontaneous
  Country: BE (occurrence: BE)
  Receive Date: 20190712
  Receipt Date: 20190712
  Transmission Date: 20191004
  Serious: Yes (Death, Other)
  Sender: FDA-Public Use
  Company Number: BE-ACTELION-A-CH2019-192689

PATIENT
  Age: 48 Year
  Sex: Female

DRUGS (8)
  1. DILTIAZEM. [Concomitant]
     Active Substance: DILTIAZEM
     Dosage: 300 MG, BID
  2. SILDENAFIL. [Concomitant]
     Active Substance: SILDENAFIL
     Indication: PULMONARY ARTERIAL HYPERTENSION
  3. DILTIAZEM. [Concomitant]
     Active Substance: DILTIAZEM
     Indication: PULMONARY ARTERIAL HYPERTENSION
     Dosage: 60 MG, TID
  4. ACETYLSALICYLIC ACID [Concomitant]
     Active Substance: ASPIRIN
     Dosage: 160 MG, QD
  5. CLOPIDOGREL [Concomitant]
     Active Substance: CLOPIDOGREL BISULFATE
     Dosage: 150 MG, QD
  6. BOSENTAN. [Suspect]
     Active Substance: BOSENTAN
     Indication: PULMONARY ARTERIAL HYPERTENSION
     Dosage: 62.5 MG, BID
     Route: 048
     Dates: start: 2006
  7. WARFARINE [Concomitant]
     Active Substance: WARFARIN
     Indication: PULMONARY ARTERIAL HYPERTENSION
  8. ILOPROST. [Concomitant]
     Active Substance: ILOPROST

REACTIONS (10)
  - Lung transplant [Fatal]
  - Concomitant disease progression [Unknown]
  - Coronary artery compression [Unknown]
  - Arterial aneurysm repair [Unknown]
  - Dyspnoea [Unknown]
  - Balloon atrial septostomy [Unknown]
  - Chest pain [Recovered/Resolved]
  - Pulmonary artery dilatation [Unknown]
  - Syncope [Unknown]
  - Stent placement [Unknown]
